FAERS Safety Report 20066590 (Version 2)
Quarter: 2022Q1

REPORT INFORMATION
  Report Type: Report from Study
  Country: IT (occurrence: IT)
  Receive Date: 20211115
  Receipt Date: 20220107
  Transmission Date: 20220423
  Serious: Yes (Other)
  Sender: FDA-Public Use
  Company Number: IT-Accord-190731

PATIENT
  Age: 6 Month
  Sex: Female

DRUGS (3)
  1. VALGANCICLOVIR [Suspect]
     Active Substance: VALGANCICLOVIR
     Indication: Congenital cytomegalovirus infection
     Dosage: 15 MILLIGRAM/KILOGRAM, ONCE A DAY
     Route: 065
  2. VALGANCICLOVIR [Suspect]
     Active Substance: VALGANCICLOVIR
     Dosage: 30 MILLIGRAM/KILOGRAM, ONCE A DAY
     Route: 065
  3. GANCICLOVIR SODIUM [Suspect]
     Active Substance: GANCICLOVIR SODIUM
     Indication: Congenital cytomegalovirus infection
     Dosage: 6 MILLIGRAM/KILOGRAM, TWO TIMES A DAY (BID 0.5 DAY)
     Route: 065

REACTIONS (1)
  - Drug resistance [Unknown]
